FAERS Safety Report 21450588 (Version 2)
Quarter: 2023Q1

REPORT INFORMATION
  Report Type: Spontaneous
  Country: DE (occurrence: DE)
  Receive Date: 20221013
  Receipt Date: 20230103
  Transmission Date: 20230418
  Serious: Yes (Hospitalization)
  Sender: FDA-Public Use
  Company Number: DE-BAYER-2022A141671

PATIENT
  Age: 46 Year
  Sex: Female
  Weight: 58 kg

DRUGS (1)
  1. KYLEENA [Suspect]
     Active Substance: LEVONORGESTREL
     Indication: Adenomyosis
     Dosage: 17.5?G/DAY
     Route: 015
     Dates: start: 20220614, end: 20221011

REACTIONS (8)
  - Swelling face [Recovering/Resolving]
  - Migraine [Recovering/Resolving]
  - Abdominal pain lower [Recovering/Resolving]
  - Fatigue [Recovering/Resolving]
  - Loss of libido [Recovering/Resolving]
  - Vaginal discharge [Recovering/Resolving]
  - Device difficult to use [None]
  - Off label use of device [None]

NARRATIVE: CASE EVENT DATE: 20220601
